FAERS Safety Report 4303018-2 (Version None)
Quarter: 2004Q1

REPORT INFORMATION
  Report Type: 
  Country: None (occurrence: None)
  Receive Date: 20040224
  Receipt Date: 19961004
  Transmission Date: 20041129
  Serious: Yes (Hospitalization)
  Sender: FDA-Public Use
  Company Number: WAES 96091731

PATIENT
  Age: 62 Year
  Sex: Male
  Weight: 71 kg

DRUGS (4)
  1. ACETAMINOPHEN W/ CODEINE [Concomitant]
     Indication: PAIN
  2. ASPIRIN [Concomitant]
     Route: 048
  3. CALCIUM CARBONATE [Concomitant]
  4. ZOCOR [Suspect]
     Indication: HYPERCHOLESTEROLAEMIA
     Route: 048
     Dates: start: 19930101, end: 19960101

REACTIONS (20)
  - ARTHRALGIA [None]
  - ASTHENIA [None]
  - ATROPHY [None]
  - BACK PAIN [None]
  - BACTERIAL SEPSIS [None]
  - BLOOD BILIRUBIN INCREASED [None]
  - BLOOD CREATINE PHOSPHOKINASE INCREASED [None]
  - BLOOD UREA INCREASED [None]
  - BURSITIS [None]
  - DERMATOMYOSITIS [None]
  - HYPOCALCAEMIA [None]
  - MYALGIA [None]
  - MYOPATHY [None]
  - MYOSITIS [None]
  - PAIN IN EXTREMITY [None]
  - POLYMYOSITIS [None]
  - PRURITUS [None]
  - PURULENCE [None]
  - RASH [None]
  - RED BLOOD CELL SEDIMENTATION RATE INCREASED [None]
